FAERS Safety Report 25746673 (Version 1)
Quarter: 2025Q3

REPORT INFORMATION
  Report Type: Spontaneous
  Country: US (occurrence: US)
  Receive Date: 20250901
  Receipt Date: 20250901
  Transmission Date: 20251021
  Serious: No
  Sender: ROCHE
  Company Number: US-ROCHE-10000373009

PATIENT

DRUGS (2)
  1. OCREVUS [Suspect]
     Active Substance: OCRELIZUMAB
     Indication: Product used for unknown indication
     Route: 050
  2. MAYZENT [Concomitant]
     Active Substance: SIPONIMOD

REACTIONS (2)
  - Drug ineffective [Unknown]
  - No adverse event [Unknown]
